FAERS Safety Report 5859934-3 (Version None)
Quarter: 2008Q3

REPORT INFORMATION
  Report Type: 
  Country: None (occurrence: None)
  Receive Date: 20080827
  Receipt Date: 20080807
  Transmission Date: 20090109
  Serious: Yes (Other)
  Sender: FDA-Public Use
  Company Number: AT-ELI_LILLY_AND_COMPANY-AT200808001360

PATIENT
  Age: 80 Year
  Sex: Male
  Weight: 75 kg

DRUGS (12)
  1. LISPRO [Suspect]
     Indication: TYPE 1 DIABETES MELLITUS
     Dosage: 10 IU, EACH MORNING
     Route: 065
     Dates: start: 20070701
  2. LISPRO [Suspect]
     Dosage: 15 U, MIDDAY
     Route: 065
     Dates: start: 20070701
  3. LISPRO [Suspect]
     Dosage: UNK, EACH EVENING
     Route: 065
     Dates: start: 20070701
  4. NEBIVOLOL HCL [Concomitant]
     Indication: BLOOD PRESSURE
     Dosage: 2.5 MG, 2/D
     Route: 065
     Dates: start: 20080415
  5. RAMIPRIL [Concomitant]
     Dosage: 5 MG, 2/D
     Route: 065
     Dates: start: 20080415
  6. INEGY [Concomitant]
     Dosage: 1 D/F, EACH EVENING
     Route: 065
     Dates: start: 20080415
  7. DOXIUM [Concomitant]
     Dosage: 500 MG, 2/D
     Route: 065
     Dates: start: 20080415
  8. TAMSULOSIN HCL [Concomitant]
     Dosage: 0.4 MG, DAILY (1/D)
     Route: 065
     Dates: start: 20080415
  9. FURON [Concomitant]
     Dosage: 40 MG, 2/D
     Route: 065
     Dates: start: 20080415
  10. ETALPHA [Concomitant]
     Dosage: 0.25 UG, 3/W
     Route: 065
     Dates: start: 20080415
  11. MAGNOSOLV [Concomitant]
     Dosage: UNK UNK, 4/W
     Dates: start: 20080415
  12. THROMBO ASS [Concomitant]
     Dosage: 100 MG, DAILY (1/D)
     Route: 065
     Dates: start: 20080415

REACTIONS (2)
  - BLOOD GLUCOSE INCREASED [None]
  - DRUG INEFFECTIVE [None]
